FAERS Safety Report 17182920 (Version 1)
Quarter: 2019Q4

REPORT INFORMATION
  Report Type: Spontaneous
  Country: US (occurrence: US)
  Receive Date: 20191220
  Receipt Date: 20191220
  Transmission Date: 20200122
  Serious: Yes (Other)
  Sender: FDA-Public Use
  Company Number: US-ACCORD-166930

PATIENT
  Age: 74 Year
  Sex: Female

DRUGS (4)
  1. ACITRETIN. [Concomitant]
     Active Substance: ACITRETIN
     Indication: SQUAMOUS CELL CARCINOMA OF SKIN
  2. FLUOROURACIL. [Suspect]
     Active Substance: FLUOROURACIL
     Indication: SQUAMOUS CELL CARCINOMA OF SKIN
     Dosage: CHEMOWRAPS 20 G OF 5% 5-FU CREAM
     Route: 061
  3. FLUOROURACIL. [Suspect]
     Active Substance: FLUOROURACIL
     Indication: SQUAMOUS CELL CARCINOMA OF SKIN
     Dosage: 0.5 MG/NODULE OF 500 MG/5 ML 5-FU, STRENGTH: 100 MG/ML
     Route: 026
  4. ZINC OXIDE. [Concomitant]
     Active Substance: ZINC OXIDE
     Indication: SQUAMOUS CELL CARCINOMA OF SKIN
     Dosage: OCCLUSIVE ZINC OXIDE-IMPREGNATED DRESSING IN A SINGLE LAYER
     Route: 061

REACTIONS (4)
  - Alopecia [Unknown]
  - Xerosis [Unknown]
  - Injection site ulcer [Recovered/Resolved]
  - Off label use [Unknown]
